FAERS Safety Report 19450549 (Version 2)
Quarter: 2021Q3

REPORT INFORMATION
  Report Type: Spontaneous
  Country: US (occurrence: US)
  Receive Date: 20210622
  Receipt Date: 20210716
  Transmission Date: 20211014
  Serious: No
  Sender: FDA-Public Use
  Company Number: US-ELI_LILLY_AND_COMPANY-US202106005570

PATIENT
  Age: 66 Year
  Sex: Male

DRUGS (5)
  1. SOLIQUA 100/33 [Concomitant]
     Active Substance: INSULIN GLARGINE\LIXISENATIDE
     Indication: TYPE 2 DIABETES MELLITUS
     Dosage: 39 U, DAILY
     Route: 065
  2. HUMALOG [Suspect]
     Active Substance: INSULIN LISPRO
     Indication: TYPE 2 DIABETES MELLITUS
     Dosage: 14 U, DAILY
     Route: 058
     Dates: start: 2019
  3. HUMALOG [Suspect]
     Active Substance: INSULIN LISPRO
     Dosage: 14 U, DAILY
     Route: 058
  4. HUMALOG [Suspect]
     Active Substance: INSULIN LISPRO
     Indication: TYPE 2 DIABETES MELLITUS
     Dosage: 14 U, DAILY
     Route: 058
     Dates: start: 2019
  5. HUMALOG [Suspect]
     Active Substance: INSULIN LISPRO
     Dosage: 14 U, DAILY
     Route: 058

REACTIONS (5)
  - Blood glucose increased [Recovered/Resolved]
  - Blood glucose increased [Unknown]
  - Product dose omission issue [Unknown]
  - Incorrect dose administered [Unknown]
  - Injection site pain [Unknown]

NARRATIVE: CASE EVENT DATE: 20210605
